FAERS Safety Report 5481015-1 (Version None)
Quarter: 2007Q4

REPORT INFORMATION
  Report Type: 
  Country: None (occurrence: None)
  Receive Date: 20071004
  Receipt Date: 20070925
  Transmission Date: 20080405
  Serious: Yes (Hospitalization)
  Sender: FDA-Public Use
  Company Number: FR-GUERBET-20070169

PATIENT
  Age: 11 Year
  Sex: Female

DRUGS (1)
  1. DOTAREM                       / GADOTERIC ACID [Suspect]
     Dosage: DOSAGE: 6, ML MILLILITRE (S), 1, 1, TOTAL INTRAVENOUS (NOT OTHERWISE SPECIFIED)
     Route: 042
     Dates: start: 20070802, end: 20070802

REACTIONS (3)
  - COUGH [None]
  - HYPERSENSITIVITY [None]
  - PHARYNGOLARYNGEAL DISCOMFORT [None]
